FAERS Safety Report 15345273 (Version 1)
Quarter: 2018Q3

REPORT INFORMATION
  Report Type: Report from Study
  Country: US (occurrence: US)
  Receive Date: 20180903
  Receipt Date: 20180903
  Transmission Date: 20181010
  Serious: Yes (Other)
  Sender: FDA-Public Use
  Company Number: US-PFIZER INC-2018305908

PATIENT
  Age: 81 Year
  Sex: Female

DRUGS (1)
  1. IBRANCE [Suspect]
     Active Substance: PALBOCICLIB
     Indication: BREAST CANCER FEMALE
     Dosage: 125 MG, 1X/DAY (QD)
     Route: 048
     Dates: start: 20180721, end: 20180827

REACTIONS (13)
  - Dyspnoea [Not Recovered/Not Resolved]
  - Tumour marker increased [Unknown]
  - White blood cell count decreased [Unknown]
  - Neuropathy peripheral [Not Recovered/Not Resolved]
  - Oral mucosal blistering [Recovering/Resolving]
  - Renal impairment [Not Recovered/Not Resolved]
  - Pruritus [Unknown]
  - Dyspnoea exertional [Not Recovered/Not Resolved]
  - Cough [Unknown]
  - Blood glucose fluctuation [Unknown]
  - Decreased appetite [Unknown]
  - Condition aggravated [Not Recovered/Not Resolved]
  - Oedema peripheral [Unknown]

NARRATIVE: CASE EVENT DATE: 2018
